FAERS Safety Report 8426528-5 (Version None)
Quarter: 2012Q2

REPORT INFORMATION
  Report Type: 
  Country: None (occurrence: None)
  Receive Date: 20120611
  Receipt Date: 20120605
  Transmission Date: 20120825
  Serious: Yes (Other)
  Sender: FDA-Public Use
  Company Number: US-PFIZER INC-2012135311

PATIENT
  Sex: Female
  Weight: 77 kg

DRUGS (6)
  1. COUMADIN [Concomitant]
     Dosage: UNK
  2. CALCIUM WITH VITAMIN D [Concomitant]
     Dosage: UNK
  3. NEXIUM [Concomitant]
     Dosage: UNK
  4. TIKOSYN [Suspect]
     Indication: ATRIAL FIBRILLATION
     Dosage: 3 CAPSULES OF 125MCG, TWO TIMES A DAY
     Route: 048
     Dates: start: 20100101, end: 20110101
  5. DILTIAZEM [Concomitant]
     Dosage: UNK
  6. CLONAZEPAM [Concomitant]
     Dosage: UNK

REACTIONS (4)
  - CELLULITIS [None]
  - DRUG INTERACTION [None]
  - DIZZINESS [None]
  - ACTIVITIES OF DAILY LIVING IMPAIRED [None]
